FAERS Safety Report 16530995 (Version 1)
Quarter: 2019Q3

REPORT INFORMATION
  Report Type: Spontaneous
  Country: US (occurrence: US)
  Receive Date: 20190703
  Receipt Date: 20190703
  Transmission Date: 20191004
  Serious: Yes (Other)
  Sender: FDA-Public Use
  Company Number: None

PATIENT
  Age: 63 Year
  Sex: Female
  Weight: 99 kg

DRUGS (4)
  1. DAILY MULTIVITAMIN [Concomitant]
     Active Substance: VITAMINS
  2. PICATO [Suspect]
     Active Substance: INGENOL MEBUTATE
     Indication: PRECANCEROUS SKIN LESION
     Dosage: ?          QUANTITY:3 TUBE;?
     Route: 061
     Dates: start: 20170310, end: 20170312
  3. VITAMIN D [Concomitant]
     Active Substance: VITAMIN D NOS
  4. DICLOFENAC [Concomitant]
     Active Substance: DICLOFENAC

REACTIONS (5)
  - Skin discolouration [None]
  - Application site vesicles [None]
  - Application site pain [None]
  - Application site scar [None]
  - Application site swelling [None]

NARRATIVE: CASE EVENT DATE: 20170310
